FAERS Safety Report 18046006 (Version 1)
Quarter: 2020Q3

REPORT INFORMATION
  Report Type: Spontaneous
  Country: US (occurrence: US)
  Receive Date: 20200720
  Receipt Date: 20200720
  Transmission Date: 20201103
  Serious: Yes (Other)
  Sender: FDA-Public Use
  Company Number: US-PFIZER INC-2020119064

PATIENT
  Age: 33 Year
  Sex: Male

DRUGS (3)
  1. KEPPRA XR [Concomitant]
     Active Substance: LEVETIRACETAM
     Dosage: 1750 MG, 2X/DAY
  2. DILANTIN [Suspect]
     Active Substance: PHENYTOIN
     Dosage: 50 MG (HE TAKES SEVEN TABLETS A DAY)
  3. DILANTIN [Suspect]
     Active Substance: PHENYTOIN
     Dosage: 3 DF, 4X/DAY (TAKING 12 OF THE 50 MG)

REACTIONS (2)
  - Seizure [Unknown]
  - Disorientation [Unknown]
